FAERS Safety Report 6441838-9 (Version None)
Quarter: 2009Q4

REPORT INFORMATION
  Report Type: 
  Country: None (occurrence: None)
  Receive Date: 20091112
  Receipt Date: 20091026
  Transmission Date: 20100525
  Serious: Yes (Hospitalization)
  Sender: FDA-Public Use
  Company Number: B0601403A

PATIENT
  Age: 34 Year
  Sex: Male

DRUGS (3)
  1. AMOXICILLIN TRIHYDRATE [Suspect]
     Indication: TOOTH ABSCESS
     Dosage: 500 MG / FOUR TIMES PER DAY / UNKNOWN
  2. FLUOXETINE [Concomitant]
  3. MULTI-VITAMIN [Concomitant]

REACTIONS (5)
  - BLOOD LACTATE DEHYDROGENASE INCREASED [None]
  - GLYCOSURIA [None]
  - HEART RATE INCREASED [None]
  - PROTEINURIA [None]
  - SERUM SICKNESS [None]
